FAERS Safety Report 12524471 (Version 2)
Quarter: 2016Q3

REPORT INFORMATION
  Report Type: Report from Study
  Country: CA (occurrence: CA)
  Receive Date: 20160704
  Receipt Date: 20160714
  Transmission Date: 20161109
  Serious: Yes (Death, Hospitalization)
  Sender: FDA-Public Use
  Company Number: CA-JNJFOC-20160625464

PATIENT
  Sex: Female

DRUGS (1)
  1. SIMPONI [Suspect]
     Active Substance: GOLIMUMAB
     Indication: ANKYLOSING SPONDYLITIS
     Dosage: STARTED ABOUT 3 YEARS AGO
     Route: 058
     Dates: start: 20151201, end: 20160530

REACTIONS (2)
  - Lung infection [Fatal]
  - Chronic obstructive pulmonary disease [Fatal]
